FAERS Safety Report 17851782 (Version 2)
Quarter: 2020Q3

REPORT INFORMATION
  Report Type: Spontaneous
  Country: JP (occurrence: JP)
  Receive Date: 20200602
  Receipt Date: 20200812
  Transmission Date: 20201103
  Serious: Yes (Other)
  Sender: FDA-Public Use
  Company Number: JP-009507513-2006JPN000347

PATIENT
  Age: 87 Year
  Sex: Male
  Weight: 42 kg

DRUGS (4)
  1. EDARAVONE [Concomitant]
     Active Substance: EDARAVONE
     Dosage: UNK
     Route: 065
  2. TEDIZOLID PHOSPHATE. [Suspect]
     Active Substance: TEDIZOLID PHOSPHATE
     Indication: BACTERAEMIA
     Dosage: 200 MG, QD
     Route: 042
     Dates: start: 20200514, end: 20200527
  3. HALIZON [Concomitant]
     Active Substance: AMPHOTERICIN B
     Indication: ORAL CANDIDIASIS
     Dosage: 20 MILLILITER, TID
     Dates: start: 20200515, end: 20200603
  4. VANCOMYCIN [Concomitant]
     Active Substance: VANCOMYCIN
     Indication: BACTERAEMIA
     Dosage: 1.1 GRAM, ONCE
     Route: 065
     Dates: start: 20200513, end: 20200603

REACTIONS (9)
  - Urinary tract infection [Unknown]
  - Oedema [Unknown]
  - Decubitus ulcer [Unknown]
  - Product use in unapproved indication [Unknown]
  - Bladder tamponade [Recovered/Resolved]
  - Cystitis haemorrhagic [Unknown]
  - Erythema [Unknown]
  - Haematuria [Recovered/Resolved]
  - Off label use [Unknown]

NARRATIVE: CASE EVENT DATE: 20200518
